FAERS Safety Report 14703069 (Version 1)
Quarter: 2018Q2

REPORT INFORMATION
  Report Type: Report from Study
  Country: None (occurrence: CA)
  Receive Date: 20180402
  Receipt Date: 20180402
  Transmission Date: 20180711
  Serious: Yes (Hospitalization, Other)
  Sender: FDA-Public Use
  Company Number: CA-ABBVIE-13P-028-1141279-00

PATIENT
  Sex: Female
  Weight: 77.18 kg

DRUGS (4)
  1. HUMIRA [Suspect]
     Active Substance: ADALIMUMAB
     Route: 058
  2. ZOPICLONE [Concomitant]
     Active Substance: ZOPICLONE
     Indication: SLEEP DISORDER THERAPY
     Route: 048
  3. HUMIRA [Suspect]
     Active Substance: ADALIMUMAB
     Route: 058
  4. HUMIRA [Suspect]
     Active Substance: ADALIMUMAB
     Indication: CROHN^S DISEASE
     Route: 058
     Dates: start: 20121121, end: 201309

REACTIONS (13)
  - Hernia [Not Recovered/Not Resolved]
  - Abdominal adhesions [Unknown]
  - Abdominal pain lower [Not Recovered/Not Resolved]
  - Intestinal obstruction [Recovered/Resolved]
  - Intestinal operation [Unknown]
  - Eye swelling [Not Recovered/Not Resolved]
  - Intestinal obstruction [Unknown]
  - Therapeutic response shortened [Not Recovered/Not Resolved]
  - Colostomy [Unknown]
  - Intestinal operation [Unknown]
  - Abdominal pain upper [Recovered/Resolved]
  - Drug effect variable [Not Recovered/Not Resolved]
  - Pain [Not Recovered/Not Resolved]

NARRATIVE: CASE EVENT DATE: 2013
